FAERS Safety Report 16095777 (Version 1)
Quarter: 2019Q1

REPORT INFORMATION
  Report Type: Report from Study
  Country: CA (occurrence: CA)
  Receive Date: 20190320
  Receipt Date: 20190320
  Transmission Date: 20190418
  Serious: Yes (Other)
  Sender: FDA-Public Use
  Company Number: CA-JNJFOC-20190109533

PATIENT
  Age: 34 Year
  Sex: Female
  Weight: 65.2 kg

DRUGS (1)
  1. REMICADE [Suspect]
     Active Substance: INFLIXIMAB
     Indication: COLITIS ULCERATIVE
     Route: 042
     Dates: start: 20110106

REACTIONS (2)
  - Mastitis [Unknown]
  - Breast abscess [Unknown]

NARRATIVE: CASE EVENT DATE: 201812
